FAERS Safety Report 12256226 (Version 1)
Quarter: 2016Q2

REPORT INFORMATION
  Report Type: Spontaneous
  Country: US (occurrence: None)
  Receive Date: 20160411
  Receipt Date: 20160411
  Transmission Date: 20160815
  Serious: Yes (Other)
  Sender: FDA-Public Use
  Company Number: None

PATIENT
  Age: 22 Year
  Sex: Female
  Weight: 44.91 kg

DRUGS (1)
  1. TRI-SPRINTEC [Suspect]
     Active Substance: ETHINYL ESTRADIOL\NORGESTIMATE
     Route: 048
     Dates: start: 2014

REACTIONS (3)
  - Acne [None]
  - Muscle spasms [None]
  - Menstruation irregular [None]

NARRATIVE: CASE EVENT DATE: 2014
